FAERS Safety Report 16803543 (Version 1)
Quarter: 2019Q3

REPORT INFORMATION
  Report Type: Spontaneous
  Country: DE (occurrence: DE)
  Receive Date: 20190913
  Receipt Date: 20190913
  Transmission Date: 20191005
  Serious: Yes (Other)
  Sender: FDA-Public Use
  Company Number: DE-TEVA-2019-DE-1099057

PATIENT
  Age: 27 Year
  Sex: Female

DRUGS (3)
  1. PREDNISOLONE. [Concomitant]
     Active Substance: PREDNISOLONE
     Indication: PROPHYLAXIS
     Dosage: SYSTEMIC PREDNISOLONE WAS ADDITIONALLY ADMINISTERED AT THE START OF THERAPY
     Route: 065
  2. CICLOSPORIN [Suspect]
     Active Substance: CYCLOSPORINE
     Indication: APLASTIC ANAEMIA
     Dosage: SYSTEMIC CICLOSPORIN THERAPY
     Route: 065
  3. ANTI-THYMOCYTE GLOBULIN (RABBIT) NOS [Concomitant]
     Active Substance: LAPINE T-LYMPHOCYTE IMMUNE GLOBULIN
     Indication: APLASTIC ANAEMIA
     Route: 065

REACTIONS (6)
  - Retinal detachment [Recovered/Resolved]
  - Retinal deposits [Recovered/Resolved]
  - Chorioretinal folds [Recovered/Resolved]
  - Intraocular pressure increased [Recovered/Resolved]
  - Mydriasis [Recovered/Resolved]
  - Ciliary body disorder [Recovered/Resolved]
